FAERS Safety Report 6727788-9 (Version None)
Quarter: 2010Q2

REPORT INFORMATION
  Report Type: 
  Country: None (occurrence: None)
  Receive Date: 20100517
  Receipt Date: 20100503
  Transmission Date: 20101027
  Serious: Yes (Other)
  Sender: FDA-Public Use
  Company Number: GR-ELI_LILLY_AND_COMPANY-GR201005001322

PATIENT
  Age: 75 Year
  Sex: Female
  Weight: 74 kg

DRUGS (5)
  1. FORTEO [Suspect]
     Indication: OSTEOPOROSIS
     Dosage: 20 UG, DAILY (1/D)
     Route: 058
     Dates: start: 20090201
  2. FERROUS SULFATE TAB [Concomitant]
     Dosage: 80 MG, DAILY (1/D)
     Route: 048
  3. TRIMETAZIDINE [Concomitant]
     Indication: ANGINA PECTORIS
     Dosage: 35 MG, DAILY (1/D)
     Route: 048
  4. CALCIORAL [Concomitant]
     Indication: OSTEOPOROSIS
     Dosage: 500 MG, DAILY (1/D)
     Route: 048
  5. EFFERCITRATE [Concomitant]
     Dosage: UNK, UNKNOWN
     Route: 048

REACTIONS (1)
  - MYELODYSPLASTIC SYNDROME [None]
